FAERS Safety Report 9251623 (Version 1)
Quarter: 2013Q2

REPORT INFORMATION
  Report Type: Spontaneous
  Country: CH (occurrence: CH)
  Receive Date: 20130424
  Receipt Date: 20130424
  Transmission Date: 20140414
  Serious: Yes (Other)
  Sender: FDA-Public Use
  Company Number: CH-JNJFOC-20130406079

PATIENT
  Age: 31 Year
  Sex: Female

DRUGS (9)
  1. HALDOL [Suspect]
     Indication: PSYCHOTIC DISORDER
     Route: 065
     Dates: start: 20120516
  2. ROCEPHIN [Suspect]
     Indication: LATENT SYPHILIS
     Route: 065
     Dates: start: 20120516, end: 20120516
  3. EXTENCILLINE [Suspect]
     Indication: LATENT SYPHILIS
     Route: 065
     Dates: start: 20120517
  4. TRUVADA [Suspect]
     Indication: HIV INFECTION
     Route: 065
     Dates: start: 20120517
  5. ISENTRESS [Suspect]
     Indication: HIV INFECTION
     Route: 065
     Dates: start: 20120517
  6. ADALAT [Suspect]
     Indication: PRODUCT USED FOR UNKNOWN INDICATION
     Route: 065
     Dates: start: 20120516
  7. UTROGESTAN [Suspect]
     Indication: PRODUCT USED FOR UNKNOWN INDICATION
     Route: 065
     Dates: start: 20120516
  8. MAGNESIOCARD [Suspect]
     Indication: PRODUCT USED FOR UNKNOWN INDICATION
     Route: 065
     Dates: start: 20120516
  9. FERINJECT [Concomitant]
     Indication: PRODUCT USED FOR UNKNOWN INDICATION
     Route: 065
     Dates: start: 20120517, end: 20120517

REACTIONS (4)
  - Premature labour [Recovered/Resolved]
  - Exposure during pregnancy [Recovered/Resolved]
  - Fatigue [Unknown]
  - Breast tenderness [Unknown]
